FAERS Safety Report 13709620 (Version 2)
Quarter: 2019Q1

REPORT INFORMATION
  Report Type: Spontaneous
  Country: FR (occurrence: FR)
  Receive Date: 20170703
  Receipt Date: 20190326
  Transmission Date: 20190417
  Serious: Yes (Hospitalization, Other)
  Sender: FDA-Public Use
  Company Number: FR-ACCORD-052967

PATIENT
  Age: 65 Year
  Sex: Female

DRUGS (5)
  1. MIANSERIN [Interacting]
     Active Substance: MIANSERIN
     Indication: DEPRESSION
     Dosage: STABILIZED ON A REGIMEN OF MIANSERIN 30 MG OD
  2. METHOTREXATE. [Concomitant]
     Active Substance: METHOTREXATE
     Indication: RHEUMATOID ARTHRITIS
     Dosage: 15 MG ONCE DAILY (OD)
  3. THIAMINE. [Concomitant]
     Active Substance: THIAMINE
     Indication: SUPPLEMENTATION THERAPY
  4. SERTRALINE [Suspect]
     Active Substance: SERTRALINE HYDROCHLORIDE
     Indication: DEPRESSION
     Dosage: 50 MG OD
  5. DIAZEPAM. [Interacting]
     Active Substance: DIAZEPAM
     Indication: DEPRESSION

REACTIONS (2)
  - Drug-device interaction [Unknown]
  - Frontotemporal dementia [Recovered/Resolved]
